FAERS Safety Report 15368786 (Version 2)
Quarter: 2018Q3

REPORT INFORMATION
  Report Type: Report from Study
  Country: None (occurrence: CH)
  Receive Date: 20180911
  Receipt Date: 20180913
  Transmission Date: 20181010
  Serious: Yes (Hospitalization)
  Sender: FDA-Public Use
  Company Number: CH-ABBVIE-18S-151-2480269-00

PATIENT
  Sex: Male

DRUGS (3)
  1. DUODOPA [Suspect]
     Active Substance: CARBIDOPA\LEVODOPA
     Indication: PARKINSONISM
     Route: 050
     Dates: start: 20150519, end: 20170724
  2. DUODOPA [Suspect]
     Active Substance: CARBIDOPA\LEVODOPA
     Dosage: MD 7ML; CD?DAY 4.5ML/H; CD?NIGHT 2.3ML/H; ED:1.5ML
     Route: 050
     Dates: start: 20170724, end: 20180808
  3. DUODOPA [Suspect]
     Active Substance: CARBIDOPA\LEVODOPA
     Dosage: MD 7ML; CD?DAY 4.4ML/H; CD?NIGHT 2.3ML/H; ED:2.0ML
     Route: 050
     Dates: start: 20180808

REACTIONS (2)
  - Pneumonia aspiration [Unknown]
  - Akinesia [Unknown]

NARRATIVE: CASE EVENT DATE: 2018
